FAERS Safety Report 14946213 (Version 1)
Quarter: 2018Q2

REPORT INFORMATION
  Report Type: Spontaneous
  Country: FR (occurrence: FR)
  Receive Date: 20180529
  Receipt Date: 20180529
  Transmission Date: 20180711
  Serious: Yes (Life-Threatening)
  Sender: FDA-Public Use
  Company Number: FR-TEVA-2018-FR-898210

PATIENT
  Age: 67 Year
  Sex: Female
  Weight: 81.3 kg

DRUGS (6)
  1. VALSARTAN. [Suspect]
     Active Substance: VALSARTAN
     Indication: HYPERTENSION
     Dosage: 160 MILLIGRAM DAILY;
     Route: 048
     Dates: start: 20171118, end: 20171129
  2. BUDESONIDE. [Concomitant]
     Active Substance: BUDESONIDE
     Dosage: BUDESONIDE + FORMOTEROL 400/12
     Route: 065
  3. FUROSEMIDE. [Suspect]
     Active Substance: FUROSEMIDE
     Indication: HYPERTENSION
     Dosage: 29 MILLIGRAM DAILY;
     Route: 048
     Dates: end: 20171129
  4. CORGARD [Suspect]
     Active Substance: NADOLOL
     Indication: ATRIAL FIBRILLATION
     Dosage: .5 MILLIGRAM DAILY;
     Route: 048
     Dates: start: 20171118, end: 20171121
  5. COUMADINE [Concomitant]
     Active Substance: WARFARIN SODIUM
     Route: 065
  6. FORMOT?ROL (FUMARATE DE) DIHYDRAT? [Concomitant]
     Route: 065

REACTIONS (3)
  - Acute kidney injury [Recovered/Resolved]
  - Dehydration [Recovered/Resolved]
  - Vomiting [Recovered/Resolved]

NARRATIVE: CASE EVENT DATE: 20171121
